FAERS Safety Report 10360002 (Version 2)
Quarter: 2014Q4

REPORT INFORMATION
  Report Type: Spontaneous
  Country: US (occurrence: US)
  Receive Date: 20140804
  Receipt Date: 20141124
  Transmission Date: 20150528
  Serious: Yes (Hospitalization, Other)
  Sender: FDA-Public Use
  Company Number: US-BAYER-2014-113001

PATIENT
  Age: 16 Year
  Sex: Female
  Weight: 63 kg

DRUGS (2)
  1. MIRENA [Suspect]
     Active Substance: LEVONORGESTREL
     Indication: CONTRACEPTION
     Dosage: 20 MCG/24HR, CONT
     Route: 015
     Dates: start: 20070327, end: 20111004
  2. SPRINTEC [Concomitant]
     Active Substance: ETHINYL ESTRADIOL\NORGESTIMATE

REACTIONS (14)
  - Internal injury [None]
  - Emotional distress [None]
  - Uterine perforation [None]
  - Anxiety [None]
  - Fear [None]
  - Device issue [None]
  - Injury [None]
  - Pelvic pain [None]
  - Depression [None]
  - Off label use [None]
  - Depressed mood [None]
  - Abdominal pain [None]
  - Genital haemorrhage [None]
  - Medical device discomfort [None]

NARRATIVE: CASE EVENT DATE: 2007
